FAERS Safety Report 15624678 (Version 1)
Quarter: 2018Q4

REPORT INFORMATION
  Report Type: Spontaneous
  Country: US (occurrence: US)
  Receive Date: 20181116
  Receipt Date: 20181116
  Transmission Date: 20190205
  Serious: No
  Sender: FDA-Public Use
  Company Number: US-ALKEM LABORATORIES LIMITED-US-ALKEM-2018-08022

PATIENT
  Age: 43 Year
  Sex: Male

DRUGS (3)
  1. THIOTHIXENE. [Suspect]
     Active Substance: THIOTHIXENE
     Indication: PRODUCT USED FOR UNKNOWN INDICATION
     Dosage: 5 MG, RESTARTED AFTER 3 WEEKS
     Route: 065
  2. DIVALPROEX [Suspect]
     Active Substance: DIVALPROEX SODIUM
     Indication: PRODUCT USED FOR UNKNOWN INDICATION
     Dosage: 1000 MG, RESTARTED AFTER 3 WEEKS
     Route: 065
  3. OLANZAPINE. [Suspect]
     Active Substance: OLANZAPINE
     Indication: SCHIZOAFFECTIVE DISORDER
     Dosage: 25 MG, QD, RESTARTED AFTER 3 WEEKS
     Route: 065

REACTIONS (2)
  - Treatment noncompliance [Unknown]
  - Priapism [Unknown]
